FAERS Safety Report 8052412-5 (Version None)
Quarter: 2012Q1

REPORT INFORMATION
  Report Type: 
  Country: None (occurrence: None)
  Receive Date: 20120118
  Receipt Date: 20120116
  Transmission Date: 20120608
  Serious: Yes (Hospitalization)
  Sender: FDA-Public Use
  Company Number: BE-PFIZER INC-2012011781

PATIENT
  Age: 14 Year
  Sex: Female
  Weight: 40 kg

DRUGS (3)
  1. ACETAMINOPHEN [Suspect]
     Indication: INTENTIONAL OVERDOSE
     Dosage: 3-4 G
     Route: 048
     Dates: start: 20120115, end: 20120115
  2. VALTRAN [Suspect]
     Indication: INTENTIONAL OVERDOSE
     Dosage: 50 GTT, UNK
     Route: 048
     Dates: start: 20120115, end: 20120115
  3. XANAX [Suspect]
     Dosage: 2-3 TABLETS
     Route: 048
     Dates: start: 20120115, end: 20120115

REACTIONS (4)
  - INTENTIONAL OVERDOSE [None]
  - SOMNOLENCE [None]
  - NAUSEA [None]
  - APATHY [None]
